FAERS Safety Report 5691468-1 (Version None)
Quarter: 2008Q1

REPORT INFORMATION
  Report Type: 
  Country: None (occurrence: None)
  Receive Date: 20080331
  Receipt Date: 20080320
  Transmission Date: 20080703
  Serious: Yes (Other)
  Sender: FDA-Public Use
  Company Number: 2008AP000712

PATIENT
  Sex: Female

DRUGS (1)
  1. TERBINAFINE HCL [Suspect]
     Dosage: ; PO
     Route: 048

REACTIONS (3)
  - ARTHRALGIA [None]
  - HEPATIC ENZYME INCREASED [None]
  - LOCAL SWELLING [None]
